FAERS Safety Report 7887168-X (Version None)
Quarter: 2011Q4

REPORT INFORMATION
  Report Type: 
  Country: None (occurrence: None)
  Receive Date: 20111102
  Receipt Date: 20110715
  Transmission Date: 20120403
  Serious: No
  Sender: FDA-Public Use
  Company Number: US-AMGEN-USASP2011036148

PATIENT
  Age: 54 Year
  Sex: Female
  Weight: 67.12 kg

DRUGS (18)
  1. MULTI-VITAMIN [Concomitant]
  2. PREDNISONE [Concomitant]
     Dosage: 5 MG, UNK
  3. ASPIRIN ADLT [Concomitant]
     Dosage: 81 MG, UNK
  4. ALBUTEROL AER 90MCG RF [Concomitant]
     Dosage: 90 MG, UNK
  5. EVOXAC [Concomitant]
     Dosage: 30 MG, UNK
  6. OMEPRAZOLE [Concomitant]
     Dosage: 20 MG, UNK
  7. IMODIUM MULTI-SYMPTOM RELIEF [Concomitant]
  8. VICODIN [Concomitant]
     Dosage: 500 MG, UNK
  9. BUSPAR FIRST MONTH [Concomitant]
     Dosage: 5 MG, UNK
  10. TRAMADOL HCL [Concomitant]
     Dosage: 50 MG, UNK
  11. SPIRIVA [Concomitant]
  12. METHOTREXATE INJ [Concomitant]
     Dosage: 50 MG, UNK
  13. BONIVA [Concomitant]
     Dosage: 150 MG, UNK
  14. FOLIC ACID [Concomitant]
     Dosage: 1 MG, UNK
  15. AMITRIPTYLINE HCL [Concomitant]
     Dosage: 75 MG, UNK
  16. ENBREL [Suspect]
     Indication: PRODUCT USED FOR UNKNOWN INDICATION
     Dosage: 50 MG, QWK
     Route: 058
  17. CALTRATE 600 CHW +D [Concomitant]
  18. NEURONTIN [Concomitant]
     Dosage: 800 MG, UNK

REACTIONS (2)
  - RHINITIS [None]
  - PHARYNGITIS [None]
